FAERS Safety Report 4534779-5 (Version None)
Quarter: 2004Q4

REPORT INFORMATION
  Report Type: 
  Country: None (occurrence: None)
  Receive Date: 20041222
  Receipt Date: 20040301
  Transmission Date: 20050328
  Serious: No
  Sender: FDA-Public Use
  Company Number: US-BRISTOL-MYERS SQUIBB COMPANY-12521860

PATIENT
  Age: 77 Year
  Sex: Female

DRUGS (5)
  1. PRAVACHOL [Suspect]
     Indication: DYSLIPIDAEMIA
     Route: 048
     Dates: start: 20010101
  2. ENALAPRIL MALEATE [Concomitant]
  3. ASPIRIN BUFFERED [Concomitant]
  4. ISOSORBIDE MONONITRATE [Concomitant]
  5. VERAPAMIL [Concomitant]

REACTIONS (1)
  - ARTHRALGIA [None]
